FAERS Safety Report 18005614 (Version 3)
Quarter: 2020Q3

REPORT INFORMATION
  Report Type: Report from Study
  Country: US (occurrence: US)
  Receive Date: 20200709
  Receipt Date: 20200724
  Transmission Date: 20201103
  Serious: Yes (Other)
  Sender: FDA-Public Use
  Company Number: NVSC2020US193913

PATIENT
  Sex: Male

DRUGS (2)
  1. ENTRESTO [Suspect]
     Active Substance: SACUBITRIL\VALSARTAN
     Dosage: 100 MG, BID (49/51 MG)
     Route: 065
  2. ENTRESTO [Suspect]
     Active Substance: SACUBITRIL\VALSARTAN
     Indication: PRODUCT USED FOR UNKNOWN INDICATION
     Dosage: 50 MG, OTHER (24/26 MG)
     Route: 065

REACTIONS (5)
  - Diabetic neuropathy [Unknown]
  - Paraesthesia [Unknown]
  - Weight decreased [Unknown]
  - Blood pressure decreased [Unknown]
  - Dizziness [Unknown]
